FAERS Safety Report 5798294-3 (Version None)
Quarter: 2008Q3

REPORT INFORMATION
  Report Type: 
  Country: None (occurrence: None)
  Receive Date: 20080702
  Receipt Date: 20080626
  Transmission Date: 20090109
  Serious: Yes (Hospitalization, Other)
  Sender: FDA-Public Use
  Company Number: US-JNJFOC-20070503573

PATIENT
  Sex: Female
  Weight: 52.62 kg

DRUGS (3)
  1. TOPAMAX [Suspect]
     Indication: MUSCLE SPASMS
     Route: 048
  2. REBIF [Suspect]
     Indication: MULTIPLE SCLEROSIS
     Route: 058
  3. BACLOFEN [Concomitant]
     Indication: MUSCLE SPASMS

REACTIONS (1)
  - LOSS OF CONSCIOUSNESS [None]
